FAERS Safety Report 7244159-X (Version None)
Quarter: 2011Q1

REPORT INFORMATION
  Report Type: 
  Country: None (occurrence: None)
  Receive Date: 20110125
  Receipt Date: 20110124
  Transmission Date: 20110831
  Serious: Yes (Death)
  Sender: FDA-Public Use
  Company Number: US-PFIZER INC-2010167165

PATIENT
  Sex: Female

DRUGS (2)
  1. VFEND [Suspect]
     Indication: LEUKAEMIA
  2. VFEND [Suspect]
     Indication: FUNGAL INFECTION
     Dosage: 200 MG, UNK

REACTIONS (1)
  - LEUKAEMIA [None]
